FAERS Safety Report 22303895 (Version 1)
Quarter: 2023Q2

REPORT INFORMATION
  Report Type: Spontaneous
  Country: US (occurrence: None)
  Receive Date: 20230509
  Receipt Date: 20230509
  Transmission Date: 20230722
  Serious: No
  Sender: FDA-Public Use
  Company Number: None

PATIENT
  Sex: Female

DRUGS (1)
  1. GRANIX [Suspect]
     Active Substance: TBO-FILGRASTIM
     Indication: Agranulocytosis
     Dosage: OTHER STRENGTH : 300/0.5 UG/ML;?FREQUENCY : MONTHLY;?
     Route: 058
     Dates: start: 202205

REACTIONS (1)
  - Drug ineffective [None]
